FAERS Safety Report 4383654-8 (Version None)
Quarter: 2004Q2

REPORT INFORMATION
  Report Type: 
  Country: None (occurrence: None)
  Receive Date: 20040623
  Receipt Date: 20031127
  Transmission Date: 20050107
  Serious: Yes (Death, Hospitalization)
  Sender: FDA-Public Use
  Company Number: FR-GLAXOSMITHKLINE-B0316346A

PATIENT
  Age: 68 Year
  Sex: Female
  Weight: 71.6 kg

DRUGS (2)
  1. ROSIGLITAZONE [Suspect]
     Indication: DIABETES MELLITUS NON-INSULIN-DEPENDENT
     Route: 048
     Dates: start: 20010301, end: 20031127
  2. TAHOR [Concomitant]
     Indication: HYPERCHOLESTEROLAEMIA
     Dosage: 10MG PER DAY
     Dates: start: 19900101

REACTIONS (6)
  - ABDOMINAL PAIN UPPER [None]
  - ANOREXIA [None]
  - GAMMOPATHY [None]
  - GENERAL PHYSICAL HEALTH DETERIORATION [None]
  - LYMPHOMA [None]
  - METASTASES TO LIVER [None]
